FAERS Safety Report 11738315 (Version 1)
Quarter: 2015Q4

REPORT INFORMATION
  Report Type: Spontaneous
  Country: US (occurrence: US)
  Receive Date: 20151110
  Receipt Date: 20151110
  Transmission Date: 20160304
  Serious: No
  Sender: FDA-Public Use
  Company Number: US-ELI_LILLY_AND_COMPANY-US201207004397

PATIENT
  Age: 59 Year
  Sex: Female

DRUGS (3)
  1. FORTEO [Suspect]
     Active Substance: TERIPARATIDE
     Dosage: 20 UG, QD
     Dates: start: 20120709
  2. FORTEO [Suspect]
     Active Substance: TERIPARATIDE
     Dosage: 20 UG, QD
  3. FORTEO [Suspect]
     Active Substance: TERIPARATIDE
     Indication: OSTEOPOROSIS
     Dosage: 20 UG, QD
     Dates: start: 201206

REACTIONS (12)
  - Disturbance in attention [Unknown]
  - Gait disturbance [Unknown]
  - Myalgia [Unknown]
  - Dizziness [Unknown]
  - Middle insomnia [Recovered/Resolved]
  - Vitamin D abnormal [Unknown]
  - Pain [Unknown]
  - Vomiting [Recovered/Resolved]
  - Arthralgia [Recovered/Resolved]
  - Balance disorder [Unknown]
  - Fatigue [Unknown]
  - Nausea [Unknown]

NARRATIVE: CASE EVENT DATE: 201206
